FAERS Safety Report 7138390-1 (Version None)
Quarter: 2010Q4

REPORT INFORMATION
  Report Type: 
  Country: None (occurrence: None)
  Receive Date: 20101206
  Receipt Date: 20101124
  Transmission Date: 20110411
  Serious: Yes (Death)
  Sender: FDA-Public Use
  Company Number: US-ROCHE-745781

PATIENT
  Age: 75 Year
  Sex: Female

DRUGS (12)
  1. BEVACIZUMAB [Suspect]
     Route: 042
     Dates: start: 20090304, end: 20090506
  2. TOPOTECAN [Suspect]
     Dosage: FIRST CYCLE: 2.3 MG/M2,SWECOND CYCLE 1.9 MG/M2 AND 3RD CYCLE 1.5 MG/M2 FOR 5 CONSECUTIVE DAYS.
     Route: 048
     Dates: start: 20090304, end: 20090506
  3. ASPIRIN [Concomitant]
  4. AMLODIPINE BESILATE [Concomitant]
  5. ATORVASTATIN CALCIUM [Concomitant]
  6. LORATADINE [Concomitant]
  7. MELATONIN [Concomitant]
  8. PROCHLORPERAZINE [Concomitant]
  9. LOPERAMIDE HYDROCHLORIDE [Concomitant]
  10. DARBEPOETIN ALFA [Concomitant]
  11. POLYSACCHARIDE-IRON COMPLEX [Concomitant]
  12. PREDNISONE [Concomitant]

REACTIONS (11)
  - ANAEMIA [None]
  - ASTHENIA [None]
  - DEATH [None]
  - DECREASED APPETITE [None]
  - DIARRHOEA [None]
  - EPISTAXIS [None]
  - FATIGUE [None]
  - NAUSEA [None]
  - NEUTROPENIA [None]
  - THROMBOCYTOPENIA [None]
  - WEIGHT DECREASED [None]
